FAERS Safety Report 14845177 (Version 2)
Quarter: 2018Q3

REPORT INFORMATION
  Report Type: Spontaneous
  Country: ES (occurrence: ES)
  Receive Date: 20180504
  Receipt Date: 20180812
  Transmission Date: 20181010
  Serious: Yes (Hospitalization, Other)
  Sender: FDA-Public Use
  Company Number: ES-TEVA-2018-ES-887245

PATIENT
  Age: 36 Year
  Sex: Male

DRUGS (3)
  1. ENGERIX?B [Suspect]
     Active Substance: HEPATITIS B VIRUS SUBTYPE ADW2 HBSAG SURFACE PROTEIN ANTIGEN
     Route: 065
     Dates: start: 20050429, end: 20050429
  2. RAMIPRIL. [Suspect]
     Active Substance: RAMIPRIL
     Route: 065
  3. ENGERIX?B [Suspect]
     Active Substance: HEPATITIS B VIRUS SUBTYPE ADW2 HBSAG SURFACE PROTEIN ANTIGEN
     Indication: PROPHYLAXIS
     Dosage: FREQUENCY OF PRODUCT : 1S PREVIOUS ADMINISTRATION FOR THIS PRODUCT IS YES
     Route: 065
     Dates: start: 20050530, end: 20050530

REACTIONS (19)
  - Conjunctivitis allergic [Unknown]
  - Myocarditis [Unknown]
  - Chest pain [Unknown]
  - Anxiety [Unknown]
  - Fatigue [Unknown]
  - Throat irritation [Unknown]
  - Myositis [Unknown]
  - Anaphylactoid reaction [Unknown]
  - Back pain [Unknown]
  - Arthralgia [Unknown]
  - Myopathy [Unknown]
  - Asthenia [Unknown]
  - Insomnia [Unknown]
  - Adverse reaction [Unknown]
  - Dyspepsia [Unknown]
  - Palpitations [Unknown]
  - Myocarditis [Unknown]
  - Malaise [Unknown]
  - Dyspnoea exertional [Unknown]

NARRATIVE: CASE EVENT DATE: 20050506
